FAERS Safety Report 7705327-3 (Version None)
Quarter: 2011Q3

REPORT INFORMATION
  Report Type: 
  Country: None (occurrence: None)
  Receive Date: 20110824
  Receipt Date: 20110210
  Transmission Date: 20111222
  Serious: Yes (Death, Hospitalization)
  Sender: FDA-Public Use
  Company Number: DE-UCBSA-027040

PATIENT
  Sex: Male
  Weight: 70 kg

DRUGS (11)
  1. CIMZIA [Suspect]
     Indication: RHEUMATOID ARTHRITIS
     Dosage: 6 DOSES
     Route: 058
     Dates: start: 20100427, end: 20100525
  2. CIMZIA [Suspect]
     Dosage: 6 DOSES
     Route: 058
     Dates: start: 20100831, end: 20101110
  3. CARVEDILOL [Concomitant]
     Indication: HYPERTENSION
     Route: 048
     Dates: start: 20050101, end: 20101229
  4. INEGY 10/20 [Concomitant]
     Indication: HYPERCHOLESTEROLAEMIA
     Dosage: 10/20 MG ONCE DAILY
     Route: 048
     Dates: start: 20051108, end: 20101229
  5. ASPIRIN [Concomitant]
     Indication: CORONARY ARTERY DISEASE
     Route: 048
     Dates: start: 20040101, end: 20101229
  6. FOSAMAX [Concomitant]
     Indication: OSTEOPOROSIS
     Route: 048
     Dates: start: 20041201, end: 20101229
  7. RAMIPRIL [Concomitant]
     Indication: HYPERTENSION
     Route: 048
     Dates: start: 20050101, end: 20101229
  8. PANTOPRAZOLE [Concomitant]
     Indication: GASTRIC DISORDER
     Route: 048
     Dates: start: 20051108, end: 20101229
  9. CIMZIA [Suspect]
     Dosage: 6 DOSES
     Route: 058
     Dates: start: 20100608, end: 20100817
  10. PREDNISOLONE [Concomitant]
     Indication: RHEUMATOID ARTHRITIS
     Route: 048
     Dates: start: 20050315, end: 20101229
  11. CALCILAC KT [Concomitant]
     Indication: OSTEOPOROSIS
     Dosage: 1000 MG/ 800 IE ONCE DAILY
     Route: 048
     Dates: start: 20041201, end: 20101229

REACTIONS (1)
  - DIARRHOEA HAEMORRHAGIC [None]
